FAERS Safety Report 12655264 (Version 2)
Quarter: 2017Q2

REPORT INFORMATION
  Report Type: Report from Study
  Country: US (occurrence: US)
  Receive Date: 20160816
  Receipt Date: 20170508
  Transmission Date: 20170830
  Serious: Yes (Other)
  Sender: FDA-Public Use
  Company Number: US-JNJFOC-20160414241

PATIENT
  Age: 75 Year
  Sex: Female
  Weight: 51 kg

DRUGS (20)
  1. IMBRUVICA [Suspect]
     Active Substance: IBRUTINIB
     Indication: CHRONIC LYMPHOCYTIC LEUKAEMIA
     Route: 048
     Dates: start: 20160523, end: 20160601
  2. IMBRUVICA [Suspect]
     Active Substance: IBRUTINIB
     Indication: CHRONIC LYMPHOCYTIC LEUKAEMIA
     Route: 048
     Dates: start: 20160509, end: 20160515
  3. IMBRUVICA [Suspect]
     Active Substance: IBRUTINIB
     Indication: CHRONIC LYMPHOCYTIC LEUKAEMIA
     Route: 048
     Dates: start: 20160328, end: 20160411
  4. IMBRUVICA [Suspect]
     Active Substance: IBRUTINIB
     Indication: CHRONIC LYMPHOCYTIC LEUKAEMIA
     Route: 048
     Dates: start: 20160321, end: 20160328
  5. LORAZEPAM. [Concomitant]
     Active Substance: LORAZEPAM
  6. SALBUTAMOL SULFATE [Concomitant]
     Active Substance: ALBUTEROL SULFATE
  7. IMBRUVICA [Suspect]
     Active Substance: IBRUTINIB
     Indication: CHRONIC LYMPHOCYTIC LEUKAEMIA
     Route: 048
     Dates: start: 20160523, end: 20160601
  8. IMBRUVICA [Suspect]
     Active Substance: IBRUTINIB
     Indication: CHRONIC LYMPHOCYTIC LEUKAEMIA
     Route: 048
     Dates: start: 2016, end: 20160608
  9. SPIRIVA [Concomitant]
     Active Substance: TIOTROPIUM BROMIDE MONOHYDRATE
  10. IMBRUVICA [Suspect]
     Active Substance: IBRUTINIB
     Indication: CHRONIC LYMPHOCYTIC LEUKAEMIA
     Route: 048
     Dates: start: 20160425, end: 20160506
  11. ACYCLOVIR. [Concomitant]
     Active Substance: ACYCLOVIR
  12. DEXILANT [Concomitant]
     Active Substance: DEXLANSOPRAZOLE
  13. IMBRUVICA [Suspect]
     Active Substance: IBRUTINIB
     Indication: CHRONIC LYMPHOCYTIC LEUKAEMIA
     Route: 048
     Dates: start: 20160628
  14. IMBRUVICA [Suspect]
     Active Substance: IBRUTINIB
     Indication: CHRONIC LYMPHOCYTIC LEUKAEMIA
     Route: 048
     Dates: start: 20160413, end: 20160422
  15. IMBRUVICA [Suspect]
     Active Substance: IBRUTINIB
     Indication: CHRONIC LYMPHOCYTIC LEUKAEMIA
     Route: 048
     Dates: start: 20160318
  16. IMBRUVICA [Suspect]
     Active Substance: IBRUTINIB
     Indication: CHRONIC LYMPHOCYTIC LEUKAEMIA
     Route: 048
     Dates: start: 201606, end: 2016
  17. IMBRUVICA [Suspect]
     Active Substance: IBRUTINIB
     Indication: CHRONIC LYMPHOCYTIC LEUKAEMIA
     Route: 048
     Dates: start: 201603
  18. DILTIAZEM. [Interacting]
     Active Substance: DILTIAZEM
     Indication: PRODUCT USED FOR UNKNOWN INDICATION
     Route: 065
  19. DILTIAZEM CD [Concomitant]
     Active Substance: DILTIAZEM
  20. PAROXETINE. [Concomitant]
     Active Substance: PAROXETINE

REACTIONS (20)
  - Pollakiuria [Unknown]
  - Joint swelling [Unknown]
  - Muscle spasms [Unknown]
  - Treatment noncompliance [Unknown]
  - Insomnia [Unknown]
  - Contusion [Recovered/Resolved]
  - Headache [Unknown]
  - Petechiae [Unknown]
  - Drug intolerance [Recovered/Resolved]
  - Oral pain [Recovered/Resolved]
  - Peripheral swelling [Unknown]
  - Chronic obstructive pulmonary disease [Unknown]
  - Angina bullosa haemorrhagica [Not Recovered/Not Resolved]
  - Rash erythematous [Recovered/Resolved]
  - Vaginal haemorrhage [Recovered/Resolved]
  - White blood cell count increased [Not Recovered/Not Resolved]
  - Fatigue [Unknown]
  - Drug interaction [Recovered/Resolved]
  - Constipation [Recovering/Resolving]
  - Diarrhoea [Recovering/Resolving]

NARRATIVE: CASE EVENT DATE: 2016
